FAERS Safety Report 7080542-3 (Version None)
Quarter: 2010Q4

REPORT INFORMATION
  Report Type: 
  Country: None (occurrence: None)
  Receive Date: 20101025
  Receipt Date: 20101008
  Transmission Date: 20110411
  Serious: Yes (Hospitalization)
  Sender: FDA-Public Use
  Company Number: ENT 2009-0224

PATIENT
  Age: 78 Year
  Sex: Male

DRUGS (7)
  1. COMTAN [Suspect]
     Indication: DRUG EFFECT DECREASED
     Dosage: 100MG, ORAL; 200 MG, ORAL, 300 MG, ORAL
     Route: 048
     Dates: start: 20071222, end: 20080125
  2. COMTAN [Suspect]
     Indication: DRUG EFFECT DECREASED
     Dosage: 100MG, ORAL; 200 MG, ORAL, 300 MG, ORAL
     Route: 048
     Dates: start: 20080125, end: 20080201
  3. COMTAN [Suspect]
     Indication: DRUG EFFECT DECREASED
     Dosage: 100MG, ORAL; 200 MG, ORAL, 300 MG, ORAL
     Route: 048
     Dates: start: 20080202, end: 20080316
  4. CARBIDOPA + LEVODOPA [Concomitant]
  5. ROPINIROLE HYDROCHLORIDE [Concomitant]
  6. SELEGILINE HYDROCHLORIDE [Concomitant]
  7. DROXIDOPA [Concomitant]

REACTIONS (5)
  - ALANINE AMINOTRANSFERASE INCREASED [None]
  - DEHYDRATION [None]
  - PNEUMONIA ASPIRATION [None]
  - RENAL FAILURE ACUTE [None]
  - RESPIRATORY FAILURE [None]
